FAERS Safety Report 4631802-4 (Version None)
Quarter: 2005Q2

REPORT INFORMATION
  Report Type: 
  Country: None (occurrence: None)
  Receive Date: 20050411
  Receipt Date: 20050328
  Transmission Date: 20051028
  Serious: Yes (Hospitalization)
  Sender: FDA-Public Use
  Company Number: JP-JNJFOC-20050306979

PATIENT
  Sex: Female
  Weight: 40 kg

DRUGS (9)
  1. REMICADE [Suspect]
     Route: 042
  2. REMICADE [Suspect]
     Route: 042
  3. REMICADE [Suspect]
     Route: 042
  4. REMICADE [Suspect]
     Route: 042
  5. REMICADE [Suspect]
     Indication: CROHN'S DISEASE
     Route: 042
  6. SALAZOPYRIN [Concomitant]
     Indication: CROHN'S DISEASE
     Route: 049
  7. PENTASA [Concomitant]
     Indication: CROHN'S DISEASE
     Route: 049
  8. ENTERAL NUTRITION [Concomitant]
  9. RHEUMATREX [Concomitant]

REACTIONS (3)
  - ABDOMINAL PAIN [None]
  - PHARYNGITIS [None]
  - TUBERCULOSIS [None]
